FAERS Safety Report 6296536-1 (Version None)
Quarter: 2009Q3

REPORT INFORMATION
  Report Type: 
  Country: None (occurrence: None)
  Receive Date: 20090804
  Receipt Date: 20090727
  Transmission Date: 20100115
  Serious: Yes (Hospitalization)
  Sender: FDA-Public Use
  Company Number: B0586959A

PATIENT
  Sex: Male
  Weight: 95 kg

DRUGS (5)
  1. AUGMENTIN [Suspect]
     Indication: HELICOBACTER PYLORI IDENTIFICATION TEST POSITIVE
     Dosage: 4.4G TWICE PER DAY
     Route: 042
     Dates: start: 20090622, end: 20090624
  2. KLACID [Concomitant]
     Indication: HELICOBACTER INFECTION
     Dosage: 250MG UNKNOWN
     Route: 065
  3. LOVENOX [Concomitant]
     Indication: DRUG USE FOR UNKNOWN INDICATION
     Route: 065
  4. PANTOPRAZOLE SODIUM [Concomitant]
     Indication: DRUG USE FOR UNKNOWN INDICATION
     Dosage: 20MG UNKNOWN
     Route: 065
  5. UNKNOWN MEDICATION [Concomitant]
     Indication: DRUG USE FOR UNKNOWN INDICATION
     Route: 065

REACTIONS (3)
  - NEPHRITIS ALLERGIC [None]
  - NEUROLEPTIC MALIGNANT SYNDROME [None]
  - RENAL FAILURE ACUTE [None]
